FAERS Safety Report 17288678 (Version 3)
Quarter: 2020Q1

REPORT INFORMATION
  Report Type: Spontaneous
  Country: JP (occurrence: JP)
  Receive Date: 20200120
  Receipt Date: 20200316
  Transmission Date: 20200409
  Serious: Yes (Hospitalization, Other)
  Sender: FDA-Public Use
  Company Number: JP-ROCHE-2526034

PATIENT
  Age: 64 Year
  Sex: Male

DRUGS (26)
  1. RABEPRAZOLE SODIUM. [Suspect]
     Active Substance: RABEPRAZOLE SODIUM
     Indication: PRODUCT USED FOR UNKNOWN INDICATION
     Route: 048
  2. PARIET [Suspect]
     Active Substance: RABEPRAZOLE SODIUM
     Route: 048
     Dates: start: 20050722, end: 20060331
  3. ACECOL [TEMOCAPRIL HYDROCHLORIDE] [Concomitant]
     Route: 048
  4. ONDANSETRON HYDROCHLORIDE. [Concomitant]
     Active Substance: ONDANSETRON HYDROCHLORIDE
     Route: 065
     Dates: start: 20050723, end: 20050901
  5. SUCRALFATE. [Concomitant]
     Active Substance: SUCRALFATE
     Route: 065
  6. DENOSINE [GANCICLOVIR] [Suspect]
     Active Substance: GANCICLOVIR
     Indication: CYTOMEGALOVIRUS OESOPHAGITIS
     Route: 041
     Dates: start: 20050601, end: 20050622
  7. DENOSINE [GANCICLOVIR] [Suspect]
     Active Substance: GANCICLOVIR
     Indication: GASTRIC ULCER
  8. MAGNESIUM OXIDE. [Concomitant]
     Active Substance: MAGNESIUM OXIDE
     Route: 065
     Dates: start: 20070423, end: 20070617
  9. KALETRA [Suspect]
     Active Substance: LOPINAVIR\RITONAVIR
     Indication: PRODUCT USED FOR UNKNOWN INDICATION
     Route: 048
     Dates: start: 20061127
  10. ZERIT [Suspect]
     Active Substance: STAVUDINE
     Indication: HIV INFECTION
     Route: 048
     Dates: start: 20050613, end: 20060518
  11. VALIXA [Suspect]
     Active Substance: VALGANCICLOVIR
     Indication: CYTOMEGALOVIRUS OESOPHAGITIS
     Route: 048
     Dates: start: 20050530, end: 20050531
  12. ZITHROMAX [Suspect]
     Active Substance: AZITHROMYCIN DIHYDRATE
     Indication: KAPOSI^S SARCOMA
     Route: 048
     Dates: start: 20050418, end: 20060123
  13. TENOFOVIR [Concomitant]
     Active Substance: TENOFOVIR
     Route: 065
     Dates: start: 20060519, end: 20061123
  14. ULCERLMIN [Concomitant]
     Active Substance: SUCRALFATE
     Dosage: FIRST THERAPY: FROM UNKNOWN TO 21/JUL/2005. SECOND THERAPY: FROM 22/JUL/2005 TO 31/MAR/2006
     Route: 065
     Dates: start: 20060331
  15. BACTRIM [Suspect]
     Active Substance: SULFAMETHOXAZOLE\TRIMETHOPRIM
     Indication: PRODUCT USED FOR UNKNOWN INDICATION
     Route: 048
  16. VALIXA [Suspect]
     Active Substance: VALGANCICLOVIR
     Route: 048
     Dates: start: 20050623, end: 20050707
  17. ALUMINIUM HYDROXIDE;MAGNESIUM CARBONATE [Concomitant]
     Route: 065
  18. EMTRICITABINE;TENOFOVIR DISOPROXIL FUMARATE [Concomitant]
     Active Substance: EMTRICITABINE\TENOFOVIR DISOPROXIL FUMARATE
     Route: 065
     Dates: start: 20061107
  19. FILGRASTIM [Concomitant]
     Active Substance: FILGRASTIM
     Dosage: FILGRASTIM WAS ADMINISTRERED ON 04/JUL/2005, AND ON 07/JUL/2005.
     Route: 065
     Dates: start: 20050704, end: 20050707
  20. ETIZOLAM [Concomitant]
     Active Substance: ETIZOLAM
     Dosage: FIRST THERAPY: FROM UNKNOWN TO 21/JUL/2005. SECOND THERAPY: FROM 22/JUL/2005 TO 31/MAR/2006
     Route: 065
     Dates: start: 20060331
  21. DENOSINE [GANCICLOVIR] [Suspect]
     Active Substance: GANCICLOVIR
     Indication: OESOPHAGEAL ULCER
  22. DOXORUBICIN HYDROCHLORIDE. [Suspect]
     Active Substance: DOXORUBICIN HYDROCHLORIDE
     Indication: PROPHYLAXIS OF NAUSEA AND VOMITING
     Route: 065
     Dates: start: 20050323
  23. PARIET [Suspect]
     Active Substance: RABEPRAZOLE SODIUM
     Indication: PRODUCT USED FOR UNKNOWN INDICATION
     Route: 048
     Dates: start: 20050721
  24. EPIVIR [Concomitant]
     Active Substance: LAMIVUDINE
     Indication: HIV INFECTION
     Route: 048
     Dates: start: 20050613, end: 20051126
  25. BAYASPIRIN [Concomitant]
     Active Substance: ASPIRIN
     Route: 048
  26. DEPASAN [Concomitant]
     Route: 048

REACTIONS (4)
  - Hypertriglyceridaemia [Not Recovered/Not Resolved]
  - Immune reconstitution inflammatory syndrome [Unknown]
  - White blood cell count decreased [Unknown]
  - Kaposi^s sarcoma [Recovered/Resolved]

NARRATIVE: CASE EVENT DATE: 20050704
